FAERS Safety Report 25419161 (Version 2)
Quarter: 2025Q3

REPORT INFORMATION
  Report Type: Spontaneous
  Country: EU (occurrence: EU)
  Receive Date: 20250610
  Receipt Date: 20250826
  Transmission Date: 20251021
  Serious: Yes (Life-Threatening, Hospitalization, Disabling, Other)
  Sender: BRISTOL-MYERS SQUIBB COMPANY
  Company Number: EU-BRISTOL-MYERS SQUIBB COMPANY-2025-076455

PATIENT
  Age: 65 Year
  Sex: Male

DRUGS (4)
  1. NIVOLUMAB [Suspect]
     Active Substance: NIVOLUMAB
     Indication: Renal cell carcinoma
     Dates: start: 20250327
  2. NIVOLUMAB [Suspect]
     Active Substance: NIVOLUMAB
     Indication: Renal cancer metastatic
     Dates: start: 20250424
  3. NELVUTAMIG [Suspect]
     Active Substance: NELVUTAMIG
     Indication: Renal cell carcinoma
     Dates: start: 20250327
  4. NELVUTAMIG [Suspect]
     Active Substance: NELVUTAMIG
     Indication: Renal cancer metastatic
     Dates: start: 20250424

REACTIONS (1)
  - Meningitis [Recovered/Resolved with Sequelae]

NARRATIVE: CASE EVENT DATE: 20250510
